FAERS Safety Report 15195844 (Version 1)
Quarter: 2018Q3

REPORT INFORMATION
  Report Type: Spontaneous
  Country: US (occurrence: US)
  Receive Date: 20180725
  Receipt Date: 20180725
  Transmission Date: 20181010
  Serious: No
  Sender: FDA-Public Use
  Company Number: US-PFIZER INC-2018297713

PATIENT
  Age: 49 Year
  Sex: Female
  Weight: 73.48 kg

DRUGS (4)
  1. ALPRAZOLAM. [Suspect]
     Active Substance: ALPRAZOLAM
     Indication: ANXIETY
  2. ALPRAZOLAM. [Suspect]
     Active Substance: ALPRAZOLAM
     Indication: HYPERTONIC BLADDER
  3. TESTOSTERONE. [Concomitant]
     Active Substance: TESTOSTERONE
     Indication: ANDROGEN DEFICIENCY
     Dosage: 1 MG, 1X/DAY
     Route: 061
  4. ALPRAZOLAM. [Suspect]
     Active Substance: ALPRAZOLAM
     Indication: PANIC ATTACK
     Dosage: 2 MG (TWO 1MG ), DAILY
     Route: 048

REACTIONS (8)
  - Withdrawal syndrome [Unknown]
  - Product taste abnormal [Unknown]
  - Nausea [Recovering/Resolving]
  - Intentional product misuse [Unknown]
  - Headache [Recovering/Resolving]
  - Product storage error [Unknown]
  - Poor quality drug administered [Unknown]
  - Terminal insomnia [Not Recovered/Not Resolved]

NARRATIVE: CASE EVENT DATE: 20180711
